FAERS Safety Report 20499697 (Version 4)
Quarter: 2022Q2

REPORT INFORMATION
  Report Type: Spontaneous
  Country: FR (occurrence: None)
  Receive Date: 20220222
  Receipt Date: 20220428
  Transmission Date: 20220721
  Serious: Yes (Other)
  Sender: FDA-Public Use
  Company Number: FR-ROCHE-3001887

PATIENT
  Age: 22 Year
  Sex: Female
  Weight: 77 kg

DRUGS (1)
  1. ERIVEDGE [Suspect]
     Active Substance: VISMODEGIB
     Indication: Medulloblastoma
     Dosage: 1 CAPSULE ONCE A DAY, TO BE SWALLOWED WHOLE AT THE SAME TIME EVERY DAY WITH A LARGE GLASS OF WATER
     Route: 048

REACTIONS (6)
  - Leukopenia [Unknown]
  - Hypothyroidism [Unknown]
  - Off label use [Unknown]
  - Headache [Unknown]
  - Asthenia [Unknown]
  - Lymphopenia [Unknown]

NARRATIVE: CASE EVENT DATE: 20220114
